FAERS Safety Report 17293232 (Version 1)
Quarter: 2020Q1

REPORT INFORMATION
  Report Type: Spontaneous
  Country: US (occurrence: US)
  Receive Date: 20200120
  Receipt Date: 20200120
  Transmission Date: 20200409
  Serious: Yes (Life-Threatening, Hospitalization)
  Sender: FDA-Public Use
  Company Number: None

PATIENT
  Age: 15 Year
  Sex: Female
  Weight: 51.75 kg

DRUGS (1)
  1. CORICIDIN HBP COUGH AND COLD COUGH SUPPRESSANT, ANTIHISTAMINE [Suspect]
     Active Substance: CHLORPHENIRAMINE MALEATE\DEXTROMETHORPHAN HYDROBROMIDE
     Dosage: ?          OTHER FREQUENCY:ONCE;?
     Route: 048

REACTIONS (1)
  - Overdose [None]

NARRATIVE: CASE EVENT DATE: 20200119
